FAERS Safety Report 18986582 (Version 1)
Quarter: 2021Q1

REPORT INFORMATION
  Report Type: Spontaneous
  Country: US (occurrence: CA)
  Receive Date: 20210309
  Receipt Date: 20210309
  Transmission Date: 20210420
  Serious: Yes (Other)
  Sender: FDA-Public Use
  Company Number: CA-TAKEDA-2021TUS013119

PATIENT
  Age: 94 Year
  Sex: Female
  Weight: 53.97 kg

DRUGS (2)
  1. CUVITRU [Suspect]
     Active Substance: HUMAN IMMUNOGLOBULIN G
     Indication: BLOOD IMMUNOGLOBULIN G DECREASED
     Route: 058
  2. CUVITRU [Suspect]
     Active Substance: HUMAN IMMUNOGLOBULIN G
     Indication: IMMUNE SYSTEM DISORDER

REACTIONS (2)
  - Syncope [Unknown]
  - Bronchospasm [Unknown]
